FAERS Safety Report 11117695 (Version 1)
Quarter: 2015Q2

REPORT INFORMATION
  Report Type: Spontaneous
  Country: US (occurrence: US)
  Receive Date: 20150518
  Receipt Date: 20150518
  Transmission Date: 20150821
  Serious: No
  Sender: FDA-Public Use
  Company Number: US-ASTRAZENECA-2015SE22602

PATIENT
  Age: 875 Month
  Sex: Male
  Weight: 108.9 kg

DRUGS (20)
  1. INVOKANA [Concomitant]
     Active Substance: CANAGLIFLOZIN
     Indication: DIABETES MELLITUS
  2. ALLOPURINOL. [Concomitant]
     Active Substance: ALLOPURINOL
     Indication: GOUT
     Route: 048
  3. TELMISARTAN HCTZ [Concomitant]
     Active Substance: HYDROCHLOROTHIAZIDE\TELMISARTAN
     Indication: HYPERTENSION
     Dosage: 80MG/25MG DAILY
     Route: 048
  4. ATORVASTATIN [Concomitant]
     Active Substance: ATORVASTATIN
     Indication: BLOOD CHOLESTEROL INCREASED
     Route: 048
  5. BYDUREON [Suspect]
     Active Substance: EXENATIDE
     Indication: TYPE 2 DIABETES MELLITUS
     Dosage: 2 MG ONCE A WEEK (BYDUREON KIT)
     Route: 058
     Dates: start: 20150107
  6. BYDUREON [Suspect]
     Active Substance: EXENATIDE
     Indication: TYPE 2 DIABETES MELLITUS
     Dosage: 2 MG ONCE A WEEK (BYDUREON PEN)
     Route: 058
     Dates: start: 201503
  7. METOPROLOL [Concomitant]
     Active Substance: METOPROLOL
     Indication: HYPERTENSION
     Route: 048
  8. DULERA [Concomitant]
     Active Substance: FORMOTEROL FUMARATE DIHYDRATE\MOMETASONE FUROATE
     Indication: ASTHMA
     Dosage: 2 PUFFS BY MOUTH BID
     Route: 002
  9. BYETTA [Suspect]
     Active Substance: EXENATIDE
     Indication: TYPE 2 DIABETES MELLITUS
     Route: 058
  10. METFORMIN [Concomitant]
     Active Substance: METFORMIN HYDROCHLORIDE
     Indication: DIABETES MELLITUS
     Dosage: DAILY
     Route: 048
  11. METOPROLOL [Concomitant]
     Active Substance: METOPROLOL
     Indication: CARDIAC DISORDER
     Route: 048
  12. BABY ASPIRIN [Concomitant]
     Active Substance: ASPIRIN
     Route: 048
  13. PROAIR HFA [Concomitant]
     Active Substance: ALBUTEROL SULFATE
     Indication: ASTHMA
     Route: 002
  14. TELMISARTAN HCTZ [Concomitant]
     Active Substance: HYDROCHLOROTHIAZIDE\TELMISARTAN
     Indication: BLOOD PRESSURE ABNORMAL
     Dosage: 80MG/25MG DAILY
     Route: 048
  15. MONTELUKAST [Concomitant]
     Active Substance: MONTELUKAST SODIUM
     Indication: MULTIPLE ALLERGIES
     Route: 048
  16. ATORVASTATIN [Concomitant]
     Active Substance: ATORVASTATIN
     Indication: BLOOD CHOLESTEROL ABNORMAL
     Route: 048
  17. PROAIR HFA [Concomitant]
     Active Substance: ALBUTEROL SULFATE
     Indication: ASTHMA
     Route: 002
  18. DULERA [Concomitant]
     Active Substance: FORMOTEROL FUMARATE DIHYDRATE\MOMETASONE FUROATE
     Indication: ASTHMA
     Route: 002
  19. VICTOZA [Concomitant]
     Active Substance: LIRAGLUTIDE
     Indication: TYPE 2 DIABETES MELLITUS
     Route: 058
     Dates: start: 2014, end: 201501
  20. BYDUREON [Suspect]
     Active Substance: EXENATIDE
     Indication: TYPE 2 DIABETES MELLITUS
     Dosage: 2 MG ONCE A WEEK (BYDUREON KIT)
     Route: 058
     Dates: start: 201501, end: 201503

REACTIONS (6)
  - Chest discomfort [Unknown]
  - Injection site haemorrhage [Unknown]
  - Asthma [Unknown]
  - Injection site pain [Unknown]
  - Injection site mass [Unknown]
  - Injection site extravasation [Unknown]

NARRATIVE: CASE EVENT DATE: 201503
